FAERS Safety Report 24134255 (Version 8)
Quarter: 2025Q4

REPORT INFORMATION
  Report Type: Report from Study
  Country: EU (occurrence: EU)
  Receive Date: 20240724
  Receipt Date: 20251119
  Transmission Date: 20260118
  Serious: Yes (Hospitalization, Other)
  Sender: CSL BEHRING
  Company Number: EU-BEH-2024175931

PATIENT
  Age: 86 Year
  Sex: Male
  Weight: 68 kg

DRUGS (32)
  1. PRIVIGEN [Suspect]
     Active Substance: HUMAN IMMUNOGLOBULIN G
     Indication: Secondary immunodeficiency
     Dosage: 30 G, TOT
     Route: 042
     Dates: start: 20240606, end: 20240606
  2. PRIVIGEN [Suspect]
     Active Substance: HUMAN IMMUNOGLOBULIN G
     Indication: Chronic lymphocytic leukaemia
     Dosage: 30 G, TOT
     Route: 042
     Dates: start: 20240404
  3. PRIVIGEN [Suspect]
     Active Substance: HUMAN IMMUNOGLOBULIN G
     Dosage: 30 G, TOT
     Route: 042
     Dates: start: 20240502
  4. PRIVIGEN [Suspect]
     Active Substance: HUMAN IMMUNOGLOBULIN G
     Dosage: UNK
     Route: 042
  5. PRIVIGEN [Suspect]
     Active Substance: HUMAN IMMUNOGLOBULIN G
     Dosage: UNK
     Route: 042
  6. PRIVIGEN [Suspect]
     Active Substance: HUMAN IMMUNOGLOBULIN G
     Dosage: UNK
     Route: 042
  7. PRIVIGEN [Suspect]
     Active Substance: HUMAN IMMUNOGLOBULIN G
     Dosage: 30 G, QMT
     Route: 042
     Dates: start: 20240606, end: 20240606
  8. PRIVIGEN [Suspect]
     Active Substance: HUMAN IMMUNOGLOBULIN G
     Dosage: 30 G
     Route: 042
     Dates: start: 20241114
  9. PRIVIGEN [Suspect]
     Active Substance: HUMAN IMMUNOGLOBULIN G
     Dosage: 30 G
     Route: 042
     Dates: start: 20241212
  10. PRIVIGEN [Suspect]
     Active Substance: HUMAN IMMUNOGLOBULIN G
     Dosage: 30 G
     Route: 042
     Dates: start: 20250109
  11. PRIVIGEN [Suspect]
     Active Substance: HUMAN IMMUNOGLOBULIN G
     Dosage: 30 G, QMT
     Route: 042
     Dates: start: 20250206, end: 20250206
  12. PRIVIGEN [Suspect]
     Active Substance: HUMAN IMMUNOGLOBULIN G
     Dosage: 30 G
     Route: 042
     Dates: start: 20250313
  13. PRIVIGEN [Suspect]
     Active Substance: HUMAN IMMUNOGLOBULIN G
     Dosage: 30 G
     Route: 042
     Dates: start: 20250410
  14. PRIVIGEN [Suspect]
     Active Substance: HUMAN IMMUNOGLOBULIN G
     Dosage: 30 G
     Route: 042
     Dates: start: 20250515
  15. PRIVIGEN [Suspect]
     Active Substance: HUMAN IMMUNOGLOBULIN G
     Dosage: 30 G, QMT
     Route: 042
     Dates: start: 20250612, end: 20250612
  16. PRIVIGEN [Suspect]
     Active Substance: HUMAN IMMUNOGLOBULIN G
     Dosage: 30 G
     Route: 042
     Dates: start: 20250814
  17. PRIVIGEN [Suspect]
     Active Substance: HUMAN IMMUNOGLOBULIN G
     Dosage: 30 G
     Route: 042
     Dates: start: 20250904
  18. PRIVIGEN [Suspect]
     Active Substance: HUMAN IMMUNOGLOBULIN G
     Dosage: 30 G, QMT
     Route: 042
     Dates: start: 20251002, end: 20251002
  19. PRIVIGEN [Suspect]
     Active Substance: HUMAN IMMUNOGLOBULIN G
     Dosage: 30 G
     Route: 042
     Dates: start: 20251030
  20. CALQUENCE [Suspect]
     Active Substance: ACALABRUTINIB
     Indication: Chronic lymphocytic leukaemia
     Dosage: 200 MG, QD
     Route: 048
     Dates: start: 20210903
  21. CLEMASTINE [Concomitant]
     Active Substance: CLEMASTINE
     Indication: Premedication
     Dosage: 2 MG
  22. PREDNISOLONE [Concomitant]
     Active Substance: PREDNISOLONE
     Indication: Premedication
     Dosage: 50 MG
  23. ACALABRUTINIB [Concomitant]
     Active Substance: ACALABRUTINIB
     Indication: Tumour vaccine therapy
     Dosage: 200 MG
  24. ACALABRUTINIB [Concomitant]
     Active Substance: ACALABRUTINIB
     Dosage: UNK
     Dates: end: 20241113
  25. ACALABRUTINIB [Concomitant]
     Active Substance: ACALABRUTINIB
     Dosage: UNK
     Dates: start: 20250611
  26. APIXABAN [Concomitant]
     Active Substance: APIXABAN
     Indication: Tumour vaccine therapy
  27. ESOMEPRAZOLE [Concomitant]
     Active Substance: ESOMEPRAZOLE
     Indication: Tumour vaccine therapy
  28. RAMIPRIL [Concomitant]
     Active Substance: RAMIPRIL
     Indication: Tumour vaccine therapy
  29. METOPROLOL SUCCINATE [Concomitant]
     Active Substance: METOPROLOL SUCCINATE
     Indication: Tumour vaccine therapy
  30. EMPAGLIFLOZIN [Concomitant]
     Active Substance: EMPAGLIFLOZIN
     Indication: Tumour vaccine therapy
  31. TORSEMIDE [Concomitant]
     Active Substance: TORSEMIDE
     Indication: Tumour vaccine therapy
  32. ATORVASTATIN [Concomitant]
     Active Substance: ATORVASTATIN
     Indication: Tumour vaccine therapy

REACTIONS (7)
  - Acquired phimosis [Recovered/Resolved]
  - Ureteral wall thickening [Recovered/Resolved]
  - Balanoposthitis [Recovered/Resolved]
  - Syncope [Recovered/Resolved]
  - Arterial perforation [Recovered/Resolved]
  - Shock haemorrhagic [Recovered/Resolved]
  - Pain in extremity [Unknown]

NARRATIVE: CASE EVENT DATE: 20240709
